FAERS Safety Report 15589870 (Version 1)
Quarter: 2018Q4

REPORT INFORMATION
  Report Type: Spontaneous
  Country: FR (occurrence: FR)
  Receive Date: 20181106
  Receipt Date: 20181106
  Transmission Date: 20190205
  Serious: Yes (Other)
  Sender: FDA-Public Use
  Company Number: FR-PROVELL PHARMACEUTICALS-2058452

PATIENT
  Sex: Male

DRUGS (2)
  1. EUTHYROX [Suspect]
     Active Substance: LEVOTHYROXINE SODIUM
     Indication: POST PROCEDURAL HYPOTHYROIDISM
  2. EUTHYROX [Suspect]
     Active Substance: LEVOTHYROXINE SODIUM

REACTIONS (9)
  - Muscle necrosis [None]
  - Acne [None]
  - Fatigue [None]
  - Decreased appetite [None]
  - Abdominal pain [None]
  - Malaise [None]
  - Muscle disorder [None]
  - Laboratory test abnormal [None]
  - Diarrhoea [None]
